FAERS Safety Report 5283741-6 (Version None)
Quarter: 2007Q2

REPORT INFORMATION
  Report Type: 
  Country: None (occurrence: None)
  Receive Date: 20070402
  Receipt Date: 20070326
  Transmission Date: 20071010
  Serious: Yes (Hospitalization)
  Sender: FDA-Public Use
  Company Number: CI-GILEAD-2007-0011742

PATIENT
  Sex: Male
  Weight: 2.9 kg

DRUGS (8)
  1. TRUVADA [Suspect]
     Indication: PROPHYLAXIS AGAINST HIV INFECTION
     Route: 064
     Dates: start: 20070114, end: 20070114
  2. NEVIRAPINE [Suspect]
     Indication: PROPHYLAXIS AGAINST HIV INFECTION
     Route: 064
     Dates: start: 20070114, end: 20070114
  3. NEVIRAPINE [Suspect]
     Dates: start: 20070114, end: 20070114
  4. ZIDOVUDINE [Suspect]
     Indication: PROPHYLAXIS AGAINST HIV INFECTION
     Route: 064
     Dates: start: 20070114, end: 20070114
  5. ZIDOVUDINE [Suspect]
     Dates: start: 20070114
  6. KANEURON [Suspect]
     Indication: FOETAL DISTRESS SYNDROME
     Dates: start: 20070117
  7. ARFOL [Suspect]
     Indication: FOETAL DISTRESS SYNDROME
     Dates: start: 20070117
  8. UVESTEROL [Suspect]
     Indication: FOETAL DISTRESS SYNDROME
     Dates: start: 20070117

REACTIONS (1)
  - CEREBRAL DISORDER [None]
